FAERS Safety Report 20924870 (Version 1)
Quarter: 2022Q2

REPORT INFORMATION
  Report Type: Spontaneous
  Country: JP (occurrence: JP)
  Receive Date: 20220607
  Receipt Date: 20220607
  Transmission Date: 20220721
  Serious: Yes (Life-Threatening, Other)
  Sender: FDA-Public Use
  Company Number: JP-ELI_LILLY_AND_COMPANY-JP202206002659

PATIENT
  Age: 14 Year
  Sex: Male

DRUGS (2)
  1. STRATTERA [Suspect]
     Active Substance: ATOMOXETINE HYDROCHLORIDE
     Indication: Attention deficit hyperactivity disorder
     Dosage: 60 MG, DAILY
     Route: 048
     Dates: start: 20180711, end: 20220524
  2. FEXOFENADINE [Concomitant]
     Active Substance: FEXOFENADINE HYDROCHLORIDE
     Dosage: UNK
     Route: 048
     Dates: start: 20180911

REACTIONS (2)
  - Ventricular tachycardia [Recovered/Resolved]
  - Ventricular extrasystoles [Unknown]

NARRATIVE: CASE EVENT DATE: 20220524
